FAERS Safety Report 24143097 (Version 2)
Quarter: 2024Q3

REPORT INFORMATION
  Report Type: Spontaneous
  Country: US (occurrence: US)
  Receive Date: 20240726
  Receipt Date: 20240730
  Transmission Date: 20241017
  Serious: Yes (Other)
  Sender: CSL Plasma
  Company Number: US-CSLP-51401728503-V13867994-2

PATIENT
  Age: 37 Year
  Sex: Male

DRUGS (1)
  1. ANTICOAGULANT SODIUM CITRATE [Suspect]
     Active Substance: SODIUM CITRATE
     Indication: Anticoagulant therapy
     Route: 050
     Dates: start: 20240717, end: 20240717

REACTIONS (15)
  - Loss of consciousness [Recovered/Resolved]
  - Tetany [Recovered/Resolved]
  - Dizziness [Recovered/Resolved]
  - Confusional state [Recovered/Resolved]
  - Blindness transient [Recovered/Resolved]
  - Muscle spasms [Recovered/Resolved]
  - Pallor [Recovered/Resolved]
  - Vision blurred [Recovered/Resolved]
  - Hypoaesthesia [Recovered/Resolved]
  - Seizure [Recovered/Resolved]
  - Disorientation [Recovered/Resolved]
  - Paraesthesia [Recovered/Resolved]
  - Fatigue [Recovered/Resolved]
  - Feeling hot [Recovered/Resolved]
  - Muscle contracture [Recovered/Resolved]

NARRATIVE: CASE EVENT DATE: 20240717
